FAERS Safety Report 4422343-8 (Version None)
Quarter: 2004Q3

REPORT INFORMATION
  Report Type: 
  Country: None (occurrence: None)
  Receive Date: 20040810
  Receipt Date: 20040722
  Transmission Date: 20050211
  Serious: Yes (Hospitalization)
  Sender: FDA-Public Use
  Company Number: 200412473JP

PATIENT
  Age: 70 Year
  Sex: Male

DRUGS (5)
  1. KETEK [Suspect]
     Indication: PHARYNGITIS
     Route: 048
     Dates: start: 20040706, end: 20040711
  2. ADALAT [Suspect]
     Indication: HYPERTENSION
     Route: 048
     Dates: start: 19940208
  3. BEZATOL [Suspect]
     Indication: HYPERLIPIDAEMIA
     Route: 048
     Dates: start: 19980905
  4. GLIMICRON [Suspect]
     Indication: DIABETES MELLITUS
     Route: 048
     Dates: start: 19940208
  5. BASEN [Suspect]
     Indication: DIABETES MELLITUS
     Route: 048
     Dates: start: 19950826

REACTIONS (5)
  - CHOLELITHIASIS [None]
  - HEPATITIS [None]
  - JAUNDICE [None]
  - MALAISE [None]
  - PRURITUS [None]
